FAERS Safety Report 15885968 (Version 1)
Quarter: 2019Q1

REPORT INFORMATION
  Report Type: Spontaneous
  Country: IT (occurrence: IT)
  Receive Date: 20190129
  Receipt Date: 20190129
  Transmission Date: 20190417
  Serious: Yes (Other)
  Sender: FDA-Public Use
  Company Number: IT-MYLANLABS-2019M1008146

PATIENT
  Age: 80 Year
  Sex: Male

DRUGS (3)
  1. VINORELBINE [Suspect]
     Active Substance: VINORELBINE\VINORELBINE TARTRATE
     Indication: LUNG SQUAMOUS CELL CARCINOMA STAGE III
     Dosage: ON DAYS 1 AND 8 EVERY 21 DAYS; SCHEDULED FOR FOUR CYCLES; ALONG WITH CISPLATIN
     Route: 042
  2. VINORELBINE [Suspect]
     Active Substance: VINORELBINE\VINORELBINE TARTRATE
     Dosage: ON DAYS 1-8 EVERY 3 WEEKS FOR FOUR CYCLES; AS MONOCHEMOTHERAPY
     Route: 042
  3. CISPLATIN. [Suspect]
     Active Substance: CISPLATIN
     Indication: LUNG SQUAMOUS CELL CARCINOMA STAGE III
     Dosage: ON DAY 1 OF EACH 21-DAY CYCLE; SCHEDULED FOR FOUR CYCLES
     Route: 065

REACTIONS (4)
  - Thrombocytopenia [Unknown]
  - Anaemia [Recovered/Resolved]
  - Febrile neutropenia [Recovered/Resolved]
  - Constipation [Unknown]
